FAERS Safety Report 20184630 (Version 2)
Quarter: 2025Q1

REPORT INFORMATION
  Report Type: Spontaneous
  Country: US (occurrence: US)
  Receive Date: 20211214
  Receipt Date: 20250131
  Transmission Date: 20250408
  Serious: Yes (Other)
  Sender: NOVO NORDISK
  Company Number: US-NOVOPROD-816795

PATIENT
  Age: 61 Year
  Sex: Female

DRUGS (1)
  1. NOVOLIN R [Suspect]
     Active Substance: INSULIN HUMAN
     Indication: Product used for unknown indication
     Route: 058
     Dates: start: 2016

REACTIONS (4)
  - Fall [Unknown]
  - Hip fracture [Unknown]
  - Brain fog [Unknown]
  - Rash [Not Recovered/Not Resolved]
